FAERS Safety Report 4359580-7 (Version None)
Quarter: 2004Q2

REPORT INFORMATION
  Report Type: 
  Country: None (occurrence: None)
  Receive Date: 20040513
  Receipt Date: 20040505
  Transmission Date: 20050107
  Serious: Yes (Death, Life-Threatening)
  Sender: FDA-Public Use
  Company Number: PERC20040023

PATIENT
  Age: 72 Year
  Sex: Female
  Weight: 56.6996 kg

DRUGS (5)
  1. PERCOCET [Suspect]
  2. CLONZAPINE [Suspect]
     Indication: SCHIZOPHRENIA, UNDIFFERENTIATED TYPE
     Dosage: 200 MG QHS PO
     Dates: start: 20030903, end: 20040101
  3. RATALIN [Suspect]
     Dosage: 20 MG BID PO
     Dates: start: 19870101
  4. PAXIL [Concomitant]
  5. ATIVAN [Concomitant]

REACTIONS (2)
  - MEDICATION ERROR [None]
  - SUDDEN DEATH [None]
